FAERS Safety Report 9166443 (Version 3)
Quarter: 2016Q3

REPORT INFORMATION
  Report Type: Spontaneous
  Country: US (occurrence: US)
  Receive Date: 20130315
  Receipt Date: 20160722
  Transmission Date: 20161109
  Serious: Yes (Other)
  Sender: FDA-Public Use
  Company Number: US-JNJFOC-20130304822

PATIENT

DRUGS (1)
  1. DOXORUBICIN HYDROCHLORIDE. [Suspect]
     Active Substance: DOXORUBICIN HYDROCHLORIDE
     Indication: BREAST CANCER RECURRENT
     Dosage: STARTED WITH 40 MG/M2 AND STOPPED ESCALATION AT 50 MG/M2 OVER 30 MINUTES
     Route: 042

REACTIONS (1)
  - Thermal burn [Unknown]
